FAERS Safety Report 5761997-0 (Version None)
Quarter: 2008Q2

REPORT INFORMATION
  Report Type: 
  Country: None (occurrence: None)
  Receive Date: 20080603
  Receipt Date: 20080521
  Transmission Date: 20081010
  Serious: Yes (Hospitalization)
  Sender: FDA-Public Use
  Company Number: 2008AL005606

PATIENT
  Age: 3 Year
  Sex: Female

DRUGS (5)
  1. FEVERALL [Suspect]
     Indication: PYREXIA
  2. FEVERALL [Suspect]
     Indication: RESPIRATORY SYNCYTIAL VIRUS BRONCHIOLITIS
  3. VALPROIC ACID [Concomitant]
  4. TOPIRAMATE [Concomitant]
  5. CLOBAZAM [Concomitant]

REACTIONS (3)
  - ALANINE AMINOTRANSFERASE INCREASED [None]
  - AMMONIA INCREASED [None]
  - ASPARTATE AMINOTRANSFERASE INCREASED [None]
